FAERS Safety Report 11322422 (Version 14)
Quarter: 2021Q1

REPORT INFORMATION
  Report Type: Spontaneous
  Country: US (occurrence: US)
  Receive Date: 20150730
  Receipt Date: 20210114
  Transmission Date: 20210419
  Serious: Yes (Hospitalization, Other)
  Sender: FDA-Public Use
  Company Number: US-PFIZER INC-2015249878

PATIENT
  Age: 76 Year
  Sex: Female
  Weight: 57 kg

DRUGS (3)
  1. LYRICA [Suspect]
     Active Substance: PREGABALIN
     Indication: CONGENITAL NEUROPATHY
     Dosage: 150 MG, 2X/DAY
     Route: 048
  2. LYRICA [Suspect]
     Active Substance: PREGABALIN
     Indication: AUTONOMIC NEUROPATHY
     Dosage: 150 MG, 2X/DAY
     Route: 048
  3. LYRICA [Suspect]
     Active Substance: PREGABALIN
     Indication: NEUROPATHY PERIPHERAL
     Dosage: 150 MG, 2X/DAY
     Route: 048
     Dates: start: 2015, end: 2018

REACTIONS (24)
  - Limb injury [Unknown]
  - Nephropathy [Unknown]
  - Pain [Unknown]
  - Dizziness [Unknown]
  - Loss of personal independence in daily activities [Unknown]
  - Limb injury [Unknown]
  - Haemorrhage [Unknown]
  - Coronavirus infection [Unknown]
  - Arthropathy [Unknown]
  - Gait inability [Unknown]
  - Road traffic accident [Unknown]
  - Therapeutic product effect incomplete [Unknown]
  - Back pain [Unknown]
  - Myocardial infarction [Unknown]
  - Feeling abnormal [Not Recovered/Not Resolved]
  - Blood cholesterol increased [Unknown]
  - Burning sensation [Unknown]
  - Cough [Recovered/Resolved]
  - Back injury [Unknown]
  - Head injury [Unknown]
  - Asthenia [Unknown]
  - Neck injury [Unknown]
  - Amnesia [Unknown]
  - Swelling [Unknown]

NARRATIVE: CASE EVENT DATE: 201507
